FAERS Safety Report 14765751 (Version 2)
Quarter: 2018Q2

REPORT INFORMATION
  Report Type: Spontaneous
  Country: ES (occurrence: ES)
  Receive Date: 20180416
  Receipt Date: 20180523
  Transmission Date: 20180711
  Serious: Yes (Other)
  Sender: FDA-Public Use
  Company Number: ES-MYLANLABS-2018M1023190

PATIENT
  Age: 48 Year
  Sex: Male

DRUGS (6)
  1. HARVONI [Interacting]
     Active Substance: LEDIPASVIR\SOFOSBUVIR
     Indication: HEPATITIS C
     Dosage: DOSAGE FORM: UNSPECIFIED
     Route: 065
  2. XEPLION [Interacting]
     Active Substance: PALIPERIDONE PALMITATE
     Dosage: 50 MG, UNK
     Route: 030
  3. RISPERIDONE. [Suspect]
     Active Substance: RISPERIDONE
     Indication: SCHIZOPHRENIA
     Dosage: DOSAGE FORM: UNSPECIFIED
     Route: 048
  4. XEPLION [Interacting]
     Active Substance: PALIPERIDONE PALMITATE
     Indication: SCHIZOPHRENIA
     Dosage: 100 MG, UNK
     Route: 030
  5. XEPLION [Interacting]
     Active Substance: PALIPERIDONE PALMITATE
     Dosage: 150 MG, UNK
     Route: 030
  6. RISPERIDONE. [Suspect]
     Active Substance: RISPERIDONE
     Dosage: DOSAGE FORM: UNSPECIFIED
     Route: 048

REACTIONS (5)
  - Hallucination [Unknown]
  - Psychotic symptom [Recovering/Resolving]
  - Inappropriate schedule of drug administration [Unknown]
  - Drug interaction [Unknown]
  - Off label use [Unknown]
